FAERS Safety Report 17968509 (Version 2)
Quarter: 2020Q3

REPORT INFORMATION
  Report Type: Spontaneous
  Country: US (occurrence: US)
  Receive Date: 20200701
  Receipt Date: 20200707
  Transmission Date: 20201103
  Serious: No
  Sender: FDA-Public Use
  Company Number: US-TEVA-2020-US-1793198

PATIENT
  Sex: Female

DRUGS (1)
  1. ADDERALL [Suspect]
     Active Substance: AMPHETAMINE ASPARTATE\AMPHETAMINE SULFATE\DEXTROAMPHETAMINE SACCHARATE\DEXTROAMPHETAMINE SULFATE
     Indication: NARCOLEPSY
     Route: 065

REACTIONS (9)
  - Impaired work ability [Unknown]
  - Drug ineffective [Unknown]
  - Quality of life decreased [Unknown]
  - Product administration interrupted [Unknown]
  - Weight increased [Unknown]
  - Fatigue [Unknown]
  - Disturbance in attention [Unknown]
  - Product substitution issue [Unknown]
  - Somnolence [Unknown]

NARRATIVE: CASE EVENT DATE: 20200619
